FAERS Safety Report 9240433 (Version 2)
Quarter: 2013Q3

REPORT INFORMATION
  Report Type: Spontaneous
  Country: US (occurrence: US)
  Receive Date: 20130418
  Receipt Date: 20130716
  Transmission Date: 20140515
  Serious: No
  Sender: FDA-Public Use
  Company Number: US-009507513-1304USA009250

PATIENT
  Sex: Female
  Weight: 55.78 kg

DRUGS (6)
  1. MIRALAX [Suspect]
     Indication: CONSTIPATION
     Dosage: 17 G, QD
     Route: 048
  2. MIRALAX [Suspect]
     Indication: MEDICAL OBSERVATION
     Dosage: 17 G, QD
     Route: 048
  3. AMITIZA [Concomitant]
     Indication: GASTRIC DISORDER
     Dosage: UNK, UNKNOWN
  4. SINGULAIR [Concomitant]
     Indication: SEASONAL ALLERGY
     Dosage: UNK, UNKNOWN
  5. LEVSIN [Concomitant]
     Indication: GASTRIC DISORDER
     Dosage: UNK, UNKNOWN
  6. CLARITIN [Concomitant]
     Indication: SEASONAL ALLERGY
     Dosage: UNK, UNKNOWN

REACTIONS (2)
  - Abdominal pain upper [Recovered/Resolved]
  - Anorectal discomfort [Recovered/Resolved]
